FAERS Safety Report 20693829 (Version 1)
Quarter: 2022Q2

REPORT INFORMATION
  Report Type: Report from Study
  Country: MX (occurrence: MX)
  Receive Date: 20220411
  Receipt Date: 20220411
  Transmission Date: 20220721
  Serious: Yes (Other)
  Sender: FDA-Public Use
  Company Number: MX-NOVARTISPH-PHHY2016MX174873

PATIENT
  Sex: Female

DRUGS (6)
  1. HYDROCHLOROTHIAZIDE\VALSARTAN [Suspect]
     Active Substance: HYDROCHLOROTHIAZIDE\VALSARTAN
     Indication: Hypertension
     Dosage: 1 DF(HYDROCHLOROTHIAZIDE12.5 MG, VALSARTAN 320 MG), QD
     Route: 065
     Dates: start: 2011, end: 2014
  2. DIOVAN [Suspect]
     Active Substance: VALSARTAN
     Indication: Hypertension
     Dosage: 1 DF, QD (6 YEARS AGO)
     Route: 065
  3. DIOVAN [Suspect]
     Active Substance: VALSARTAN
     Dosage: 1 DOSAGE FORM, QD
     Route: 048
     Dates: start: 2012
  4. ASPIRIN [Concomitant]
     Active Substance: ASPIRIN
     Indication: Product used for unknown indication
     Dosage: UNK
     Route: 065
  5. CRESTOR [Concomitant]
     Active Substance: ROSUVASTATIN CALCIUM
     Indication: Blood cholesterol abnormal
     Dosage: 1 OT, QD
     Route: 065
  6. METOPROLOL [Concomitant]
     Active Substance: METOPROLOL
     Indication: Blood pressure abnormal
     Dosage: 0.5 DF, UNK
     Route: 065

REACTIONS (7)
  - Arterial occlusive disease [Unknown]
  - Dizziness [Unknown]
  - Malaise [Unknown]
  - Deafness [Unknown]
  - Vein disorder [Unknown]
  - Embolism [Unknown]
  - Vertigo [Unknown]

NARRATIVE: CASE EVENT DATE: 20150101
